FAERS Safety Report 5776257-1 (Version None)
Quarter: 2008Q2

REPORT INFORMATION
  Report Type: 
  Country: None (occurrence: None)
  Receive Date: 20080618
  Receipt Date: 20080610
  Transmission Date: 20081010
  Serious: Yes (Hospitalization)
  Sender: FDA-Public Use
  Company Number: DE-WYE-H04419508

PATIENT
  Sex: Male
  Weight: 87 kg

DRUGS (5)
  1. RAPAMUNE [Suspect]
     Indication: PROPHYLAXIS AGAINST TRANSPLANT REJECTION
     Route: 048
     Dates: start: 20080418, end: 20080601
  2. RAPAMUNE [Suspect]
     Route: 048
     Dates: start: 20080601
  3. URSO FALK [Concomitant]
     Dosage: 2 X 250 MG (FREQUENCY UNSPECIFIED)
  4. NEXIUM [Concomitant]
     Dosage: 20 MG (FREQUENCY UNSPECIFIED)
  5. DECORTIN [Concomitant]
     Indication: PROPHYLAXIS AGAINST TRANSPLANT REJECTION
     Dosage: 5 MG (FREQUENCY UNSPECIFIED)

REACTIONS (1)
  - LIVER TRANSPLANT REJECTION [None]
